FAERS Safety Report 11696508 (Version 1)
Quarter: 2015Q4

REPORT INFORMATION
  Report Type: Spontaneous
  Country: US (occurrence: US)
  Receive Date: 20151104
  Receipt Date: 20151104
  Transmission Date: 20160304
  Serious: Yes (Other)
  Sender: FDA-Public Use
  Company Number: US-AMGEN-USASP2015114832

PATIENT
  Age: 58 Year
  Sex: Female
  Weight: 35.37 kg

DRUGS (1)
  1. ENBREL [Suspect]
     Active Substance: ETANERCEPT
     Indication: RHEUMATOID ARTHRITIS
     Dosage: 50 MG, QWK
     Route: 058
     Dates: start: 2011

REACTIONS (5)
  - Drug effect decreased [Unknown]
  - Infection [Unknown]
  - Cerebral haemorrhage [Unknown]
  - Brain operation [Unknown]
  - Road traffic accident [Unknown]

NARRATIVE: CASE EVENT DATE: 201406
